FAERS Safety Report 9543315 (Version 2)
Quarter: 2014Q1

REPORT INFORMATION
  Report Type: Spontaneous
  Country: US (occurrence: None)
  Receive Date: 20130524
  Receipt Date: 20130724
  Transmission Date: 20141002
  Serious: Yes (Other)
  Sender: FDA-Public Use
  Company Number: PHEH2012US025443

PATIENT
  Age: 55 Year
  Sex: Male
  Weight: 99 kg

DRUGS (5)
  1. GILENYA [Suspect]
     Indication: MULTIPLE SCLEROSIS
     Dosage: 0.5 MG, QD, ORAL
     Route: 048
     Dates: start: 201205, end: 20130103
  2. AMBIEN (ZOLPIDEM TARTRATE) [Concomitant]
  3. MINTOX (ALUMINIUM HYDROXIDE, MAGNESIUM HYDROXIDE) [Concomitant]
  4. COLACE [Concomitant]
  5. DETROL LA (TOLTERODINE L-TARTRATE) [Concomitant]

REACTIONS (3)
  - Hepatic enzyme increased [None]
  - Alanine aminotransferase increased [None]
  - Aspartate aminotransferase increased [None]
